FAERS Safety Report 7303876-3 (Version None)
Quarter: 2011Q1

REPORT INFORMATION
  Report Type: 
  Country: None (occurrence: None)
  Receive Date: 20110221
  Receipt Date: 20110215
  Transmission Date: 20110831
  Serious: Yes (Other)
  Sender: FDA-Public Use
  Company Number: B0697395A

PATIENT
  Sex: Male
  Weight: 71 kg

DRUGS (5)
  1. TOPALGIC ( FRANCE ) [Concomitant]
     Indication: RESTLESS LEGS SYNDROME
     Dosage: 100MG PER DAY
     Route: 048
  2. ATACAND [Concomitant]
     Indication: HYPERTENSION
     Dosage: 8MG PER DAY
     Route: 065
  3. ROPINIROLE HYDROCHLORIDE [Suspect]
     Indication: RESTLESS LEGS SYNDROME
     Route: 048
  4. CONTINUOUS POSITIVE AIRWAY PRESSURE [Concomitant]
     Indication: SLEEP APNOEA SYNDROME
  5. XATRAL [Concomitant]
     Indication: BENIGN PROSTATIC HYPERPLASIA
     Dosage: 10MG PER DAY
     Route: 065

REACTIONS (9)
  - DYSKINESIA [None]
  - TREMOR [None]
  - FATIGUE [None]
  - DEPRESSED LEVEL OF CONSCIOUSNESS [None]
  - MUSCULOSKELETAL STIFFNESS [None]
  - SNORING [None]
  - PERIARTICULAR DISORDER [None]
  - MUSCLE ATROPHY [None]
  - SUDDEN ONSET OF SLEEP [None]
